FAERS Safety Report 7907157-6 (Version None)
Quarter: 2011Q4

REPORT INFORMATION
  Report Type: 
  Country: None (occurrence: None)
  Receive Date: 20111109
  Receipt Date: 20111104
  Transmission Date: 20120403
  Serious: Yes (Other)
  Sender: FDA-Public Use
  Company Number: AUR-APL-2011-05720

PATIENT
  Age: 79 Year
  Sex: Female

DRUGS (1)
  1. ALENDRONATE SODIUM [Suspect]
     Indication: OSTEOPOROSIS
     Dosage: 10 MG (70 MG,1 IN 1 WK),ORAL
     Route: 048
     Dates: start: 20100901, end: 20110201

REACTIONS (3)
  - LOOSE TOOTH [None]
  - GINGIVITIS [None]
  - OSTEITIS [None]
